FAERS Safety Report 5861141-5 (Version None)
Quarter: 2008Q3

REPORT INFORMATION
  Report Type: 
  Country: None (occurrence: None)
  Receive Date: 20080827
  Receipt Date: 20080225
  Transmission Date: 20090109
  Serious: No
  Sender: FDA-Public Use
  Company Number: US-ABBOTT-08P-163-0440145-00

PATIENT
  Sex: Male
  Weight: 65.83 kg

DRUGS (11)
  1. COATED PDS [Suspect]
     Indication: LOW DENSITY LIPOPROTEIN INCREASED
     Route: 048
     Dates: start: 20080207
  2. CAPOTRIL [Concomitant]
     Indication: HYPERTENSION
     Route: 048
  3. DILTIAZEM HCL [Concomitant]
     Indication: CARDIOVASCULAR EVENT PROPHYLAXIS
     Route: 048
  4. FUROSEMIDE [Concomitant]
     Indication: HYPERTENSION
     Route: 048
  5. POTASSIUM CHLORIDE [Concomitant]
     Indication: BLOOD POTASSIUM DECREASED
  6. FOSOMAX [Concomitant]
     Indication: OSTEOPOROSIS
  7. DIGITEC [Concomitant]
     Indication: HYPERTENSION
  8. WARFARIN SODIUM [Concomitant]
     Indication: ANTICOAGULANT THERAPY
     Dosage: 5 MG 4 DAYS/WK AND 1/2 TABLET 3 DAYS/WK
  9. EZETIMIBE [Concomitant]
     Indication: BLOOD CHOLESTEROL INCREASED
  10. ACETYLSALICYLIC ACID SRT [Concomitant]
     Indication: CARDIOVASCULAR EVENT PROPHYLAXIS
  11. BIMATOPROST [Concomitant]
     Indication: GLAUCOMA

REACTIONS (2)
  - FLUSHING [None]
  - HEADACHE [None]
